FAERS Safety Report 8686333 (Version 3)
Quarter: 2014Q2

REPORT INFORMATION
  Report Type: Spontaneous
  Country: US (occurrence: US)
  Receive Date: 20120726
  Receipt Date: 20131024
  Transmission Date: 20141212
  Serious: Yes (Other)
  Sender: FDA-Public Use
  Company Number: US-PFIZER INC-2012178640

PATIENT
  Age: 56 Year
  Sex: Male

DRUGS (2)
  1. DILANTIN [Suspect]
     Indication: CONVULSION
     Dosage: 100 MG, SIX CAPSULES DAILY
  2. PHENOBARBITAL [Concomitant]
     Dosage: UNK

REACTIONS (1)
  - Convulsion [Recovered/Resolved]
